FAERS Safety Report 7328941-6 (Version None)
Quarter: 2011Q1

REPORT INFORMATION
  Report Type: 
  Country: None (occurrence: None)
  Receive Date: 20110225
  Receipt Date: 20110225
  Transmission Date: 20110831
  Serious: Yes (Life-Threatening, Hospitalization)
  Sender: FDA-Public Use
  Company Number: None

PATIENT
  Age: 51 Year
  Sex: Female

DRUGS (2)
  1. CEFOTETAN [Suspect]
     Indication: POST PROCEDURAL INFECTION
     Dosage: 2 GM ONCE IV
     Route: 042
     Dates: start: 20110217, end: 20110217
  2. CEFOTETAN [Suspect]
     Indication: PROPHYLAXIS
     Dosage: 2 GM ONCE IV
     Route: 042
     Dates: start: 20110217, end: 20110217

REACTIONS (1)
  - ANAPHYLACTIC SHOCK [None]
